FAERS Safety Report 7119694-5 (Version None)
Quarter: 2010Q4

REPORT INFORMATION
  Report Type: 
  Country: None (occurrence: None)
  Receive Date: 20101123
  Receipt Date: 20101119
  Transmission Date: 20110411
  Serious: Yes (Life-Threatening, Hospitalization, Other)
  Sender: FDA-Public Use
  Company Number: FR-ELI_LILLY_AND_COMPANY-FR201011005118

PATIENT
  Sex: Female

DRUGS (5)
  1. HUMALOG [Suspect]
     Indication: TYPE 1 DIABETES MELLITUS
     Route: 058
     Dates: start: 20080101
  2. LANTUS [Concomitant]
     Indication: TYPE 1 DIABETES MELLITUS
     Route: 058
     Dates: start: 20080101
  3. GLICLAZIDE [Concomitant]
     Indication: TYPE 1 DIABETES MELLITUS
     Route: 048
  4. ACETYLSALICYLIC ACID [Concomitant]
     Indication: THROMBOSIS
     Route: 048
  5. ZESTORETIC [Concomitant]
     Indication: HYPERTENSION
     Route: 048

REACTIONS (1)
  - SARCOMA [None]
